FAERS Safety Report 5777572-8 (Version None)
Quarter: 2008Q2

REPORT INFORMATION
  Report Type: 
  Country: None (occurrence: None)
  Receive Date: 20080618
  Receipt Date: 20080611
  Transmission Date: 20081010
  Serious: Yes (Other)
  Sender: FDA-Public Use
  Company Number: GB-PFIZER INC-2008049665

PATIENT
  Age: 59 Year
  Sex: Female
  Weight: 167 kg

DRUGS (3)
  1. GENOTROPIN [Suspect]
     Indication: HYPOPITUITARISM
     Route: 058
  2. DDAVP [Concomitant]
     Route: 048
  3. ATORVASTATIN [Concomitant]
     Route: 048

REACTIONS (1)
  - PITUITARY TUMOUR BENIGN [None]
